FAERS Safety Report 5650432-9 (Version None)
Quarter: 2008Q1

REPORT INFORMATION
  Report Type: 
  Country: None (occurrence: None)
  Receive Date: 20080303
  Receipt Date: 20080219
  Transmission Date: 20080703
  Serious: Yes (Life-Threatening, Other)
  Sender: FDA-Public Use
  Company Number: 2008SP004010

PATIENT
  Age: 14 Year
  Sex: Male

DRUGS (3)
  1. RIBAVIRIN [Suspect]
     Indication: HEPATITIS C VIRUS
     Dosage: PO
     Route: 048
  2. PEG-INTRON [Suspect]
     Indication: HEPATITIS C VIRUS
     Dosage: ONCE; IV
     Route: 042
  3. TACROLIMUS [Concomitant]

REACTIONS (4)
  - BIOPSY LIVER ABNORMAL [None]
  - CHOLESTASIS [None]
  - RENAL FAILURE [None]
  - RENAL TUBULAR DISORDER [None]
